FAERS Safety Report 12384014 (Version 1)
Quarter: 2016Q2

REPORT INFORMATION
  Report Type: Spontaneous
  Country: US (occurrence: None)
  Receive Date: 20160518
  Receipt Date: 20160518
  Transmission Date: 20160815
  Serious: No
  Sender: FDA-Public Use
  Company Number: None

PATIENT
  Age: 55 Year
  Sex: Female
  Weight: 61.24 kg

DRUGS (6)
  1. XOPENEX HFA [Suspect]
     Active Substance: LEVALBUTEROL TARTRATE
     Indication: WHEEZING
     Dosage: EMERGENCY INHALER
     Dates: start: 20160402, end: 20160402
  2. NEIL MED NASAL RINSE [Concomitant]
  3. IBUPROFEN. [Concomitant]
     Active Substance: IBUPROFEN
  4. LORATADINE. [Concomitant]
     Active Substance: LORATADINE
  5. FLUTICASONE [Concomitant]
     Active Substance: FLUTICASONE\FLUTICASONE PROPIONATE
  6. XOPENEX HFA [Suspect]
     Active Substance: LEVALBUTEROL TARTRATE
     Indication: DYSPNOEA
     Dosage: EMERGENCY INHALER
     Dates: start: 20160402, end: 20160402

REACTIONS (5)
  - Oral pruritus [None]
  - Paraesthesia oral [None]
  - Dysphonia [None]
  - Laryngitis [None]
  - Tongue disorder [None]

NARRATIVE: CASE EVENT DATE: 20160405
